FAERS Safety Report 11217608 (Version 1)
Quarter: 2015Q2

REPORT INFORMATION
  Report Type: Spontaneous
  Country: DE (occurrence: DE)
  Receive Date: 20150625
  Receipt Date: 20150625
  Transmission Date: 20150821
  Serious: Yes (Hospitalization, Congenital Anomaly)
  Sender: FDA-Public Use
  Company Number: PHHY2015DE076155

PATIENT
  Age: 1 Day
  Sex: Male

DRUGS (3)
  1. LEPONEX / CLOZARIL (CLOZAPINE) [Suspect]
     Active Substance: CLOZAPINE
     Indication: PRODUCT USED FOR UNKNOWN INDICATION
     Dosage: MOTHER RECEIVED DOSE BETWEEN 75 AND 50 MG/DAY
     Route: 064
  2. FOLSAN [Concomitant]
     Active Substance: FOLIC ACID
     Indication: PRODUCT USED FOR UNKNOWN INDICATION
     Route: 064
  3. QUILONUM [Suspect]
     Active Substance: LITHIUM CARBONATE
     Indication: PRODUCT USED FOR UNKNOWN INDICATION
     Route: 064

REACTIONS (7)
  - Aorta hypoplasia [Not Recovered/Not Resolved]
  - Aortic valve disease [Recovered/Resolved with Sequelae]
  - Atrial septal defect [Not Recovered/Not Resolved]
  - Pulmonary artery stenosis [Recovered/Resolved with Sequelae]
  - Dilatation ventricular [Not Recovered/Not Resolved]
  - Coarctation of the aorta [Recovered/Resolved with Sequelae]
  - Patent ductus arteriosus [Recovered/Resolved]

NARRATIVE: CASE EVENT DATE: 20150323
